FAERS Safety Report 14599809 (Version 1)
Quarter: 2018Q1

REPORT INFORMATION
  Report Type: Other
  Country: ES (occurrence: ES)
  Receive Date: 20180305
  Receipt Date: 20180305
  Transmission Date: 20180509
  Serious: Yes (Other)
  Sender: FDA-Public Use
  Company Number: ES-CELLTRION INC.-2018ES018205

PATIENT

DRUGS (2)
  1. CEFUROXIMA                         /00454602/ [Concomitant]
     Indication: URINARY TRACT INFECTION
     Dosage: 500 MG, EVERY 12 HOUR
     Route: 048
     Dates: start: 20171021
  2. REMSIMA [Suspect]
     Active Substance: INFLIXIMAB
     Indication: ANKYLOSING SPONDYLITIS
     Dosage: 280 MG, 1 CYCLE
     Route: 042
     Dates: start: 20171026, end: 20171026

REACTIONS (2)
  - Back pain [Recovered/Resolved]
  - Infusion related reaction [Recovered/Resolved]

NARRATIVE: CASE EVENT DATE: 20171026
